FAERS Safety Report 12397974 (Version 2)
Quarter: 2016Q2

REPORT INFORMATION
  Report Type: Spontaneous
  Country: US (occurrence: US)
  Receive Date: 20160524
  Receipt Date: 20160629
  Transmission Date: 20160815
  Serious: Yes (Life-Threatening, Hospitalization, Other)
  Sender: FDA-Public Use
  Company Number: US-ACTAVIS-2016-10686

PATIENT
  Age: 37 Year
  Sex: Male

DRUGS (2)
  1. IBUPROFEN (AMALLC) [Suspect]
     Active Substance: IBUPROFEN
     Indication: SUICIDE ATTEMPT
  2. IBUPROFEN (AMALLC) [Suspect]
     Active Substance: IBUPROFEN
     Indication: PAIN
     Dosage: 12 G, TOTAL - 30 PILLS (400 MG)
     Route: 048

REACTIONS (6)
  - Cerebrovascular accident [Recovering/Resolving]
  - Acute myocardial infarction [Recovering/Resolving]
  - Suicide attempt [Unknown]
  - Intentional overdose [Unknown]
  - Thrombotic thrombocytopenic purpura [Recovering/Resolving]
  - Vitiligo [Unknown]
